FAERS Safety Report 6135108-6 (Version None)
Quarter: 2009Q1

REPORT INFORMATION
  Report Type: 
  Country: None (occurrence: None)
  Receive Date: 20090327
  Receipt Date: 20090316
  Transmission Date: 20090719
  Serious: Yes (Other)
  Sender: FDA-Public Use
  Company Number: RO-ROCHE-621775

PATIENT
  Sex: Female

DRUGS (1)
  1. PEG-INTERFERON ALFA 2A (RO 25-8310) [Suspect]
     Route: 058
     Dates: start: 20070903, end: 20090225

REACTIONS (2)
  - INTERVERTEBRAL DISC PROTRUSION [None]
  - PARAPARESIS [None]
